FAERS Safety Report 15435931 (Version 2)
Quarter: 2018Q4

REPORT INFORMATION
  Report Type: Report from Study
  Country: US (occurrence: US)
  Receive Date: 20180927
  Receipt Date: 20181122
  Transmission Date: 20190204
  Serious: No
  Sender: FDA-Public Use
  Company Number: US-SA-2018SA266447

PATIENT
  Age: 29 Year
  Sex: Male

DRUGS (1)
  1. AGALSIDASE BETA [Suspect]
     Active Substance: AGALSIDASE BETA
     Indication: FABRY^S DISEASE
     Dosage: UNK
     Route: 041
     Dates: start: 20180523

REACTIONS (4)
  - Infusion related reaction [Unknown]
  - Throat tightness [Unknown]
  - Dyspnoea [Unknown]
  - Somnolence [Unknown]

NARRATIVE: CASE EVENT DATE: 20180904
